FAERS Safety Report 6313879-3 (Version None)
Quarter: 2009Q3

REPORT INFORMATION
  Report Type: 
  Country: None (occurrence: None)
  Receive Date: 20090817
  Receipt Date: 20090817
  Transmission Date: 20100115
  Serious: Yes (Other)
  Sender: FDA-Public Use
  Company Number: None

PATIENT
  Age: 63 Year
  Sex: Female
  Weight: 56 kg

DRUGS (2)
  1. AVELOX [Suspect]
     Indication: PROTEUS INFECTION
     Dosage: ONLY TOOK ONE PILL PO
     Route: 048
  2. AVELOX [Suspect]
     Indication: URINARY TRACT INFECTION
     Dosage: ONLY TOOK ONE PILL PO
     Route: 048

REACTIONS (14)
  - ANXIETY [None]
  - DIZZINESS [None]
  - FEELING ABNORMAL [None]
  - HEADACHE [None]
  - HEART RATE INCREASED [None]
  - HYPERHIDROSIS [None]
  - INSOMNIA [None]
  - IRRITABILITY [None]
  - NAUSEA [None]
  - NERVOUSNESS [None]
  - PALPITATIONS [None]
  - PARAESTHESIA [None]
  - TENDON PAIN [None]
  - TREMOR [None]
